FAERS Safety Report 8199654-6 (Version None)
Quarter: 2012Q1

REPORT INFORMATION
  Report Type: 
  Country: None (occurrence: None)
  Receive Date: 20120311
  Receipt Date: 20120229
  Transmission Date: 20120608
  Serious: Yes (Other)
  Sender: FDA-Public Use
  Company Number: GB-ASTRAZENECA-2012SE14055

PATIENT
  Sex: Female

DRUGS (1)
  1. SEROQUEL [Suspect]
     Route: 048
     Dates: start: 20090227

REACTIONS (3)
  - SPINAL DEFORMITY [None]
  - MUSCLE SPASMS [None]
  - CEREBRAL HAEMORRHAGE [None]
